FAERS Safety Report 8543493-0 (Version None)
Quarter: 2012Q3

REPORT INFORMATION
  Report Type: 
  Country: None (occurrence: None)
  Receive Date: 20120727
  Receipt Date: 20120724
  Transmission Date: 20120928
  Serious: Yes (Other)
  Sender: FDA-Public Use
  Company Number: PHHY2012BR064261

PATIENT
  Sex: Female

DRUGS (4)
  1. CRESTOR [Concomitant]
     Indication: ANTIPLATELET THERAPY
     Dosage: 20 MG, QD (NIGHT)
  2. DIOVAN HCT [Suspect]
     Indication: BLOOD PRESSURE
     Dosage: 1 DF (320/25 MG), QD (MORNING)
  3. NEXIUM [Concomitant]
     Indication: ABDOMINAL DISCOMFORT
     Dosage: 20 MG, PRN (MORNING)
  4. ATENOLOL [Concomitant]
     Indication: BLOOD PRESSURE
     Dosage: 50 MG, BID (MORNING + NIGHT)

REACTIONS (2)
  - ISCHAEMIA [None]
  - DIARRHOEA [None]
